FAERS Safety Report 4880050-1 (Version None)
Quarter: 2005Q4

REPORT INFORMATION
  Report Type: 
  Country: None (occurrence: None)
  Receive Date: 20051223
  Receipt Date: 20050907
  Transmission Date: 20060501
  Serious: Yes (Hospitalization)
  Sender: FDA-Public Use
  Company Number: 05P-163-0310125-00

PATIENT
  Age: 63 Year
  Sex: Male
  Weight: 86.1834 kg

DRUGS (13)
  1. HUMIRA [Suspect]
     Indication: RHEUMATOID ARTHRITIS
     Dosage: 40 MG, 1 IN 2 WK, SUBCUTANEOUS
     Route: 058
     Dates: start: 20030101
  2. NICOTINIC ACID [Concomitant]
  3. FOLIC ACID [Concomitant]
  4. METHOTREXATE [Concomitant]
  5. ATOVASTATIN [Concomitant]
  6. CLOPIDOGREL BISULFATE [Concomitant]
  7. LEFLUNOMIDE [Concomitant]
  8. ATENOLOL [Concomitant]
  9. ALPRAZOLAM [Concomitant]
  10. VICODIN [Concomitant]
  11. SERTRALINE HYDROCHLORIDE [Concomitant]
  12. QUINAPRIL HCL [Concomitant]
  13. MULTIVITAMIN [Concomitant]

REACTIONS (1)
  - MYOCARDIAL INFARCTION [None]
